FAERS Safety Report 23588638 (Version 2)
Quarter: 2024Q1

REPORT INFORMATION
  Report Type: Spontaneous
  Country: CN (occurrence: CN)
  Receive Date: 20240302
  Receipt Date: 20240303
  Transmission Date: 20240409
  Serious: Yes (Hospitalization, Other)
  Sender: FDA-Public Use
  Company Number: CN-STRIDES ARCOLAB LIMITED-2024SP002484

PATIENT
  Age: 26 Year
  Sex: Female

DRUGS (2)
  1. ETOPOSIDE [Suspect]
     Active Substance: ETOPOSIDE
     Indication: Gestational trophoblastic tumour
     Dosage: UNK UNK, EVERY 3 WEEKS (CYCLICAL)
     Route: 065
  2. CISPLATIN [Suspect]
     Active Substance: CISPLATIN
     Indication: Gestational trophoblastic tumour
     Dosage: UNK UNK, EVERY 3 WEEKS (CYCLICAL)
     Route: 065

REACTIONS (4)
  - Nasal ulcer [Unknown]
  - Pharyngeal ulceration [Unknown]
  - Myelosuppression [Unknown]
  - Drug ineffective for unapproved indication [Unknown]
